FAERS Safety Report 16296258 (Version 1)
Quarter: 2019Q2

REPORT INFORMATION
  Report Type: Report from Study
  Country: GB (occurrence: GB)
  Receive Date: 20190510
  Receipt Date: 20190510
  Transmission Date: 20190711
  Serious: Yes (Other)
  Sender: FDA-Public Use
  Company Number: GB-JNJFOC-20190400498

PATIENT
  Sex: Female

DRUGS (1)
  1. STELARA [Suspect]
     Active Substance: USTEKINUMAB
     Indication: CROHN^S DISEASE
     Route: 058
     Dates: start: 20180725

REACTIONS (8)
  - Palpitations [Unknown]
  - Headache [Unknown]
  - Hair growth abnormal [Unknown]
  - Nausea [Unknown]
  - Loss of consciousness [Unknown]
  - Infection [Unknown]
  - Paraesthesia [Unknown]
  - Dizziness [Unknown]
